FAERS Safety Report 7268485-3 (Version None)
Quarter: 2011Q1

REPORT INFORMATION
  Report Type: 
  Country: None (occurrence: None)
  Receive Date: 20110121
  Receipt Date: 20110112
  Transmission Date: 20110831
  Serious: Yes (Disabling)
  Sender: FDA-Public Use
  Company Number: 2011MA000306

PATIENT

DRUGS (6)
  1. VENLAFAXINE HYDROCHLORIDE [Suspect]
     Indication: DEPRESSION
     Dosage: 150 MG;BID;PO
     Route: 048
     Dates: start: 20100701, end: 20101001
  2. CITALOPRAM [Concomitant]
  3. ALBUTEROL [Concomitant]
  4. CETIRIZINE [Concomitant]
  5. SERETIDE [Concomitant]
  6. PREV MEDS [Concomitant]

REACTIONS (14)
  - CONFUSIONAL STATE [None]
  - PERSECUTORY DELUSION [None]
  - IRRITABILITY [None]
  - HEADACHE [None]
  - RESTLESSNESS [None]
  - COORDINATION ABNORMAL [None]
  - INSOMNIA [None]
  - DEPRESSED MOOD [None]
  - ILLUSION [None]
  - VISION BLURRED [None]
  - PARAESTHESIA [None]
  - ANXIETY [None]
  - SUICIDAL IDEATION [None]
  - AMNESIA [None]
